FAERS Safety Report 4741965-8 (Version None)
Quarter: 2005Q3

REPORT INFORMATION
  Report Type: 
  Country: None (occurrence: None)
  Receive Date: 20050805
  Receipt Date: 20050531
  Transmission Date: 20060218
  Serious: Yes (Hospitalization)
  Sender: FDA-Public Use
  Company Number: TRP_0006_2004

PATIENT
  Age: 49 Year
  Sex: Male
  Weight: 130.6359 kg

DRUGS (16)
  1. RIBASPHERE [Suspect]
     Indication: HEPATITIS C
     Dosage: DF PO
     Route: 048
     Dates: start: 20040611, end: 20040701
  2. RIBASPHERE [Suspect]
     Indication: HEPATITIS C
     Dosage: DF PO
     Route: 048
     Dates: start: 20040910, end: 20041029
  3. PEG-INTRON [Suspect]
     Indication: HEPATITIS C
     Dosage: DF SC
     Dates: start: 20040611, end: 20040701
  4. PEG-INTRON [Suspect]
     Indication: HEPATITIS C
     Dosage: DF SC
     Dates: start: 20040910, end: 20041029
  5. AMARYL [Concomitant]
  6. ASPIRIN [Concomitant]
  7. ALOE VERA CREAM [Concomitant]
  8. DYAZIDE [Concomitant]
  9. EFFEXOR [Concomitant]
  10. GLUCOSAMINE/CHRONDROITIN [Concomitant]
  11. L-LYSINE [Concomitant]
  12. MULTI-VITAMIN [Concomitant]
  13. PREVACID [Concomitant]
  14. TOPROL-XL [Concomitant]
  15. TYLENOL (CAPLET) [Concomitant]
  16. ASCORBIC ACID [Concomitant]

REACTIONS (1)
  - ANAEMIA [None]
